FAERS Safety Report 9782621 (Version 1)
Quarter: 2013Q4

REPORT INFORMATION
  Report Type: Spontaneous
  Country: US (occurrence: None)
  Receive Date: 20131224
  Receipt Date: 20131224
  Transmission Date: 20140711
  Serious: Yes (Other)
  Sender: FDA-Public Use
  Company Number: None

PATIENT
  Sex: Female
  Weight: 62.14 kg

DRUGS (5)
  1. VAGIFEM [Suspect]
     Indication: VULVOVAGINAL DRYNESS
     Route: 067
     Dates: start: 2009, end: 201311
  2. VAGIFEM [Suspect]
     Indication: HOT FLUSH
     Route: 067
     Dates: start: 2009, end: 201311
  3. SYMBICORT [Concomitant]
  4. SINGULAR [Concomitant]
  5. LIPITOR [Concomitant]

REACTIONS (7)
  - Groin pain [None]
  - Vulvovaginal pain [None]
  - Vulvovaginal discomfort [None]
  - Dyspareunia [None]
  - Cystitis [None]
  - Dysuria [None]
  - Vulvovaginal burning sensation [None]
